FAERS Safety Report 9247335 (Version 3)
Quarter: 2013Q2

REPORT INFORMATION
  Report Type: Spontaneous
  Country: FR (occurrence: FR)
  Receive Date: 20130423
  Receipt Date: 20130514
  Transmission Date: 20140414
  Serious: Yes (Life-Threatening)
  Sender: FDA-Public Use
  Company Number: FR-MERCK-1304FRA007448

PATIENT
  Age: 83 Year
  Sex: Female

DRUGS (6)
  1. NORSET [Suspect]
     Dosage: 15 MG, QD
     Route: 048
     Dates: start: 20130325, end: 20130327
  2. ACETAMINOPHEN [Concomitant]
     Dosage: 1 G, PER 6 HOUR
  3. AUGMENTIN [Concomitant]
     Dosage: 1 G, TID
  4. MOTILIUM [Concomitant]
     Dosage: 3 DF, QD
  5. INEXIUM [Concomitant]
     Dosage: 40 MG, UNK
  6. CARDENSIEL [Concomitant]
     Dosage: 1.25 MG, BID

REACTIONS (1)
  - Hyperkalaemia [Recovered/Resolved]
